FAERS Safety Report 5911056-9 (Version None)
Quarter: 2008Q4

REPORT INFORMATION
  Report Type: 
  Country: None (occurrence: None)
  Receive Date: 20081007
  Receipt Date: 20080930
  Transmission Date: 20090506
  Serious: Yes (Other)
  Sender: FDA-Public Use
  Company Number: JP-AVENTIS-200819302GDDC

PATIENT
  Age: 60 Year
  Sex: Male

DRUGS (1)
  1. RIFADIN [Suspect]
     Dates: start: 20071201, end: 20080101

REACTIONS (1)
  - THROMBOTIC THROMBOCYTOPENIC PURPURA [None]
